FAERS Safety Report 9441890 (Version 2)
Quarter: 2013Q4

REPORT INFORMATION
  Report Type: Report from Study
  Country: US (occurrence: US)
  Receive Date: 20130806
  Receipt Date: 20131028
  Transmission Date: 20140711
  Serious: Yes (Other)
  Sender: FDA-Public Use
  Company Number: US-JNJFOC-20130717449

PATIENT
  Sex: 0

DRUGS (2)
  1. REMICADE [Suspect]
     Indication: COLITIS ULCERATIVE
     Dosage: DURATION: ALMOST 5 YEARS
     Route: 042
  2. SIMPONI [Suspect]
     Indication: COLITIS ULCERATIVE
     Route: 058
     Dates: start: 201306

REACTIONS (3)
  - Clostridium difficile infection [Unknown]
  - Colitis ulcerative [Unknown]
  - Drug ineffective [Unknown]
